FAERS Safety Report 8510152-X (Version None)
Quarter: 2012Q2

REPORT INFORMATION
  Report Type: 
  Country: None (occurrence: None)
  Receive Date: 20120405
  Receipt Date: 20090713
  Transmission Date: 20120825
  Serious: Yes (Hospitalization)
  Sender: FDA-Public Use
  Company Number: PHEH2009US07519

PATIENT
  Sex: Female

DRUGS (1)
  1. RECLAST [Suspect]
     Dosage: INFUSION
     Dates: start: 20090629, end: 20090629

REACTIONS (5)
  - BLOOD MAGNESIUM DECREASED [None]
  - MUSCLE SPASMS [None]
  - PAIN [None]
  - DIARRHOEA [None]
  - DYSPNOEA [None]
